FAERS Safety Report 9645536 (Version 3)
Quarter: 2014Q1

REPORT INFORMATION
  Report Type: Spontaneous
  Country: US (occurrence: US)
  Receive Date: 20131025
  Receipt Date: 20140204
  Transmission Date: 20141002
  Serious: Yes (Hospitalization, Disabling, Other)
  Sender: FDA-Public Use
  Company Number: US-009507513-1310USA010656

PATIENT
  Sex: Female
  Weight: 58.96 kg

DRUGS (3)
  1. NUVARING [Suspect]
     Indication: CONTRACEPTION
     Dosage: 0.12 MG-0.015 MG/24HR X 3 WKS
     Route: 067
     Dates: start: 200801, end: 201211
  2. NUVARING [Suspect]
     Dosage: 0.12 MG-0.015 MG/24HR X 3 WKS
     Route: 067
     Dates: start: 20121126
  3. NUVARING [Suspect]
     Dosage: 0.12 MG-0.015 MG/24HR X 3 WKS
     Route: 067
     Dates: end: 201301

REACTIONS (4)
  - Pulmonary embolism [Not Recovered/Not Resolved]
  - Deep vein thrombosis [Not Recovered/Not Resolved]
  - Pulmonary mass [Unknown]
  - Limb injury [Unknown]
